FAERS Safety Report 6092727-3 (Version None)
Quarter: 2009Q1

REPORT INFORMATION
  Report Type: 
  Country: None (occurrence: None)
  Receive Date: 20090225
  Receipt Date: 20090223
  Transmission Date: 20090719
  Serious: Yes (Hospitalization)
  Sender: FDA-Public Use
  Company Number: US-BAYER-200910435BCC

PATIENT
  Age: 14 Year
  Sex: Female
  Weight: 75 kg

DRUGS (1)
  1. MIDOL [Suspect]
     Indication: DYSMENORRHOEA
     Dosage: AS USED: 30 DF
     Dates: start: 20090209

REACTIONS (4)
  - ANALGESIC DRUG LEVEL INCREASED [None]
  - ANXIETY [None]
  - FEELING JITTERY [None]
  - TACHYCARDIA [None]
